FAERS Safety Report 7809940-4 (Version None)
Quarter: 2011Q4

REPORT INFORMATION
  Report Type: 
  Country: None (occurrence: None)
  Receive Date: 20111012
  Receipt Date: 20111011
  Transmission Date: 20120403
  Serious: No
  Sender: FDA-Public Use
  Company Number: US-PFIZER INC-2011242748

PATIENT
  Sex: Female
  Weight: 97.506 kg

DRUGS (4)
  1. ADVIL CONGESTION RELIEF [Suspect]
     Indication: HEADACHE
     Dosage: UNK, 4X/DAY
     Route: 048
     Dates: start: 20111001, end: 20111005
  2. DILAUDID [Concomitant]
     Indication: BACK DISORDER
     Dosage: 8 MG, 6X/DAY
     Route: 048
  3. OXYMORPHONE HYDROCHLORIDE [Concomitant]
     Indication: BACK DISORDER
     Dosage: 40 MG, 2X/DAY
     Route: 048
  4. SOMA [Concomitant]
     Indication: MUSCLE RELAXANT THERAPY
     Dosage: 350 MG, 4X/DAY
     Route: 048

REACTIONS (1)
  - ABDOMINAL PAIN UPPER [None]
